FAERS Safety Report 4384742-2 (Version None)
Quarter: 2004Q2

REPORT INFORMATION
  Report Type: 
  Country: None (occurrence: None)
  Receive Date: 20040625
  Receipt Date: 20040408
  Transmission Date: 20050107
  Serious: Yes (Death, Hospitalization, Other)
  Sender: FDA-Public Use
  Company Number: 200413109US

PATIENT
  Sex: Female
  Weight: 98.2 kg

DRUGS (12)
  1. ARAVA [Suspect]
     Indication: RHEUMATOID ARTHRITIS
     Route: 048
     Dates: start: 20011128, end: 20040212
  2. PREMARIN [Concomitant]
     Indication: MENOPAUSAL SYMPTOMS
     Route: 048
  3. PLAQUENIL [Concomitant]
     Indication: RHEUMATOID ARTHRITIS
     Route: 048
  4. TAGAMET [Concomitant]
     Indication: GASTROOESOPHAGEAL REFLUX DISEASE
     Route: 048
  5. ELAVIL [Concomitant]
     Indication: DEPRESSION
     Route: 048
  6. METFORMIN HCL [Concomitant]
     Indication: DIABETES MELLITUS
     Route: 048
  7. LASIX [Concomitant]
     Indication: OEDEMA
     Route: 048
  8. POTASSIUM CHLORIDE [Concomitant]
     Route: 048
  9. MULTIVITAMIN [Concomitant]
     Dosage: DOSE: 1 TABLET
     Route: 048
  10. METHOTREXATE [Concomitant]
     Dosage: DOSE: NOT PROVIDED
     Dates: start: 19970901, end: 19980701
  11. MOBIC [Concomitant]
     Dosage: DOSE: NOT PROVIDED
  12. NEURONTIN [Concomitant]
     Dosage: DOSE: NOT PROVIDED

REACTIONS (7)
  - ASCITES [None]
  - CHOLELITHIASIS [None]
  - DEHYDRATION [None]
  - GASTROINTESTINAL HAEMORRHAGE [None]
  - HEPATIC CIRRHOSIS [None]
  - HEPATORENAL SYNDROME [None]
  - RENAL FAILURE ACUTE [None]
